APPROVED DRUG PRODUCT: SERENTIL
Active Ingredient: MESORIDAZINE BESYLATE
Strength: EQ 25MG BASE/ML
Dosage Form/Route: CONCENTRATE;ORAL
Application: N016997 | Product #001
Applicant: NOVARTIS PHARMACEUTICALS CORP
Approved: Approved Prior to Jan 1, 1982 | RLD: No | RS: No | Type: DISCN